FAERS Safety Report 5778406-8 (Version None)
Quarter: 2008Q2

REPORT INFORMATION
  Report Type: 
  Country: None (occurrence: None)
  Receive Date: 20080619
  Receipt Date: 20070705
  Transmission Date: 20081010
  Serious: No
  Sender: FDA-Public Use
  Company Number: A0662530A

PATIENT
  Age: 24 Year
  Sex: Female

DRUGS (3)
  1. ZYBAN [Suspect]
     Indication: SMOKING CESSATION THERAPY
     Route: 065
     Dates: start: 20070526
  2. NICOTINE POLACRILEX [Suspect]
     Indication: SMOKING CESSATION THERAPY
     Dosage: 1GUM AS REQUIRED
     Route: 002
     Dates: start: 20070526
  3. NICOTINE [Suspect]
     Indication: SMOKING CESSATION THERAPY
     Dosage: 1PAT PER DAY
     Route: 062
     Dates: start: 20070526, end: 20070529

REACTIONS (1)
  - DYSPNOEA [None]
